FAERS Safety Report 8359904-X (Version None)
Quarter: 2012Q2

REPORT INFORMATION
  Report Type: 
  Country: None (occurrence: None)
  Receive Date: 20120515
  Receipt Date: 20120511
  Transmission Date: 20120825
  Serious: Yes (Other)
  Sender: FDA-Public Use
  Company Number: US-PFIZER INC-2012115801

PATIENT
  Sex: Female
  Weight: 76 kg

DRUGS (6)
  1. LISINOPRIL [Concomitant]
     Indication: HYPERTENSION
     Dosage: 10 MG, DAILY
  2. PLAVIX [Concomitant]
     Indication: ANGINA PECTORIS
     Dosage: 40 MG, TWICE A DAY
  3. TRICOR [Concomitant]
     Indication: CARDIAC DISORDER
     Dosage: 145 MG, DAILY
  4. LIPITOR [Suspect]
     Indication: BLOOD CHOLESTEROL INCREASED
     Dosage: UNK
     Route: 048
     Dates: start: 19930101, end: 19980101
  5. LASIX [Concomitant]
     Indication: CARDIAC DISORDER
     Dosage: 80 MG, TWICE A DAY
  6. LIPITOR [Suspect]
     Dosage: 20 MG, DAILY
     Dates: start: 20120101

REACTIONS (1)
  - BLOOD GLUCOSE ABNORMAL [None]
